FAERS Safety Report 5871888-2 (Version None)
Quarter: 2008Q3

REPORT INFORMATION
  Report Type: 
  Country: None (occurrence: None)
  Receive Date: 20080905
  Receipt Date: 20080829
  Transmission Date: 20090109
  Serious: Yes (Other)
  Sender: FDA-Public Use
  Company Number: FR-BAYER-200825325GPV

PATIENT
  Age: 86 Year
  Sex: Female

DRUGS (3)
  1. CIPROFLOXACIN HYDROCHLORIDE [Suspect]
     Indication: SIGMOIDITIS
     Route: 065
  2. CIPROFLOXACIN HYDROCHLORIDE [Suspect]
     Route: 065
  3. FLAGYL [Concomitant]
     Indication: SIGMOIDITIS
     Route: 065

REACTIONS (1)
  - MYOSITIS [None]
